FAERS Safety Report 22337119 (Version 1)
Quarter: 2023Q2

REPORT INFORMATION
  Report Type: Spontaneous
  Country: US (occurrence: US)
  Receive Date: 20230518
  Receipt Date: 20230518
  Transmission Date: 20230722
  Serious: No
  Sender: FDA-Public Use
  Company Number: US-G1 THERAPEUTICS-2023G1US0000034

PATIENT

DRUGS (6)
  1. COSELA [Suspect]
     Active Substance: TRILACICLIB DIHYDROCHLORIDE
     Indication: Myelosuppression
     Dosage: UNK
     Route: 042
     Dates: start: 20221025
  2. COSELA [Suspect]
     Active Substance: TRILACICLIB DIHYDROCHLORIDE
     Dosage: 566.4 MG: 240 MG/M2
     Route: 041
     Dates: start: 20230214, end: 20230214
  3. COSELA [Suspect]
     Active Substance: TRILACICLIB DIHYDROCHLORIDE
     Dosage: 566.4 MG: 240 MG/M2
     Route: 041
     Dates: start: 20230214
  4. ETOPOSIDE [Concomitant]
     Active Substance: ETOPOSIDE
     Indication: Product used for unknown indication
     Dosage: UNK
  5. CARBOPLATIN [Concomitant]
     Active Substance: CARBOPLATIN
     Indication: Product used for unknown indication
     Dosage: UNK
  6. TECENTRIQ [Concomitant]
     Active Substance: ATEZOLIZUMAB
     Indication: Product used for unknown indication
     Dosage: UNK

REACTIONS (1)
  - Injection site extravasation [Recovered/Resolved]

NARRATIVE: CASE EVENT DATE: 20230214
